FAERS Safety Report 16338505 (Version 1)
Quarter: 2019Q2

REPORT INFORMATION
  Report Type: Spontaneous
  Country: FR (occurrence: FR)
  Receive Date: 20190521
  Receipt Date: 20190521
  Transmission Date: 20190711
  Serious: Yes (Hospitalization)
  Sender: FDA-Public Use
  Company Number: FR-BAYER-200310263BFR

PATIENT
  Age: 44 Year
  Sex: Male

DRUGS (13)
  1. NISISCO [Suspect]
     Active Substance: HYDROCHLOROTHIAZIDE\VALSARTAN
     Indication: PRODUCT USED FOR UNKNOWN INDICATION
     Dosage: UNK
  2. TRINITRINE [Concomitant]
     Active Substance: NITROGLYCERIN
     Indication: CHEST PAIN
     Dosage: UNK
     Route: 048
     Dates: start: 20030225, end: 20030225
  3. NISISCO [Suspect]
     Active Substance: HYDROCHLOROTHIAZIDE\VALSARTAN
     Indication: HYPERTENSION
     Dosage: 1 DF, QD ()
     Route: 048
  4. CELEBREX [Suspect]
     Active Substance: CELECOXIB
     Indication: UNEVALUABLE EVENT
     Dosage: 2 CAPS/DAY ()
     Route: 048
  5. TRINITRINE [Concomitant]
     Active Substance: NITROGLYCERIN
     Indication: CHEST PAIN
     Dosage: UNK
     Route: 048
  6. GLUCOR [Suspect]
     Active Substance: ACARBOSE
     Indication: UNEVALUABLE EVENT
     Dosage: UNK
     Route: 048
  7. TAHOR [Suspect]
     Active Substance: ATORVASTATIN CALCIUM
     Indication: UNEVALUABLE EVENT
     Dosage: UNK
     Route: 048
  8. CELEBREX [Suspect]
     Active Substance: CELECOXIB
     Indication: UNEVALUABLE EVENT
     Dosage: UNK
     Route: 048
     Dates: end: 20030225
  9. DAONIL [Suspect]
     Active Substance: GLYBURIDE
     Indication: TYPE 2 DIABETES MELLITUS
     Dosage: 3 DF DAILY ()
     Route: 048
  10. DAONIL [Suspect]
     Active Substance: GLYBURIDE
     Indication: TYPE 2 DIABETES MELLITUS
     Dosage: UNK
  11. FLODIL (FELODIPINE) [Suspect]
     Active Substance: FELODIPINE
     Indication: UNEVALUABLE EVENT
     Dosage: UNK
     Route: 048
  12. TAHOR [Suspect]
     Active Substance: ATORVASTATIN CALCIUM
     Indication: UNEVALUABLE EVENT
     Dosage: 1 TAB/DAY ()
  13. GLUCOR [Suspect]
     Active Substance: ACARBOSE
     Indication: UNEVALUABLE EVENT
     Dosage: 3 TAB/DAY ()

REACTIONS (2)
  - Chest pain [Unknown]
  - Angina pectoris [Unknown]

NARRATIVE: CASE EVENT DATE: 20030225
